FAERS Safety Report 25482860 (Version 2)
Quarter: 2025Q3

REPORT INFORMATION
  Report Type: Spontaneous
  Country: US (occurrence: US)
  Receive Date: 20250626
  Receipt Date: 20250715
  Transmission Date: 20251021
  Serious: No
  Sender: ROCHE
  Company Number: US-ROCHE-10000318232

PATIENT
  Sex: Female
  Weight: 75.6 kg

DRUGS (13)
  1. ACTEMRA [Suspect]
     Active Substance: TOCILIZUMAB
     Indication: Rheumatoid arthritis
     Route: 042
     Dates: start: 20250605, end: 20250605
  2. ACTEMRA [Suspect]
     Active Substance: TOCILIZUMAB
     Indication: Rheumatoid arthritis
     Route: 042
     Dates: start: 20230105, end: 20230105
  3. ACTEMRA [Suspect]
     Active Substance: TOCILIZUMAB
     Route: 042
     Dates: start: 20230202, end: 20230202
  4. INFLUENZA VIRUS VACCINE [Concomitant]
     Active Substance: INFLUENZA VIRUS VACCINE
  5. SARS-COV-2 vaccine [Concomitant]
  6. ASCORBIC ACID [Concomitant]
     Active Substance: ASCORBIC ACID
  7. CALCIUM CITRATE [Concomitant]
     Active Substance: CALCIUM CITRATE
  8. CELEBREX [Concomitant]
     Active Substance: CELECOXIB
  9. VIVELLE-DOT [Concomitant]
     Active Substance: ESTRADIOL
  10. SYNTHROID [Concomitant]
     Active Substance: LEVOTHYROXINE SODIUM
  11. FISH OIL [Concomitant]
     Active Substance: FISH OIL
  12. PROMETRIUM [Concomitant]
     Active Substance: PROGESTERONE
  13. CHOLECALCIFEROL [Concomitant]
     Active Substance: CHOLECALCIFEROL

REACTIONS (51)
  - Arthralgia [Unknown]
  - Mean cell haemoglobin increased [Unknown]
  - Blood urea increased [Unknown]
  - Dyspnoea [Unknown]
  - Cough [Unknown]
  - Gastric ulcer [Unknown]
  - Micturition urgency [Unknown]
  - Alopecia [Unknown]
  - Viral infection [Unknown]
  - Adrenal suppression [Unknown]
  - Osteopenia [Unknown]
  - Eosinophil count increased [Unknown]
  - Low density lipoprotein increased [Unknown]
  - Headache [Unknown]
  - Mean cell volume increased [Unknown]
  - Blood glucose decreased [Unknown]
  - White blood cell count decreased [Unknown]
  - Pain [Unknown]
  - Blood sodium decreased [Unknown]
  - Blood glucose increased [Unknown]
  - Red blood cell count decreased [Unknown]
  - Platelet count decreased [Unknown]
  - Lymphocyte count decreased [Unknown]
  - Foot deformity [Unknown]
  - Osteoarthritis [Unknown]
  - Neutrophil count decreased [Unknown]
  - Mean cell haemoglobin concentration increased [Unknown]
  - Low density lipoprotein increased [Unknown]
  - Illness [Unknown]
  - Nasopharyngitis [Unknown]
  - Sinus congestion [Unknown]
  - Pharyngitis [Unknown]
  - Oropharyngeal oedema [Unknown]
  - Pharyngeal erythema [Unknown]
  - Neutrophil count increased [Unknown]
  - Back pain [Unknown]
  - Pain in extremity [Unknown]
  - Night sweats [Unknown]
  - Blood potassium decreased [Unknown]
  - Soft tissue swelling [Unknown]
  - Blood calcium decreased [Unknown]
  - Meniscus injury [Unknown]
  - Patellofemoral pain syndrome [Unknown]
  - Spondylolisthesis [Unknown]
  - Spinal retrolisthesis [Unknown]
  - Exostosis [Unknown]
  - Intervertebral disc degeneration [Unknown]
  - COVID-19 [Unknown]
  - Neck pain [Unknown]
  - Nausea [Unknown]
  - Joint lock [Unknown]
